FAERS Safety Report 12683373 (Version 1)
Quarter: 2016Q3

REPORT INFORMATION
  Report Type: Spontaneous
  Country: US (occurrence: US)
  Receive Date: 20160825
  Receipt Date: 20160825
  Transmission Date: 20161109
  Serious: No
  Sender: FDA-Public Use
  Company Number: US-PFIZER INC-2016398393

PATIENT
  Age: 56 Year
  Sex: Male
  Weight: 105.6 kg

DRUGS (12)
  1. IRON + VITAMIN C [Concomitant]
     Active Substance: ASCORBIC ACID\IRON
     Dosage: UNK
  2. ACETAMINOPHEN W/HYDROCODONE [Concomitant]
     Active Substance: ACETAMINOPHEN\HYDROCODONE
     Dosage: UNK, AS NEEDED, (5 MG HYDROCODONE, 325 MG ACETAMINOPHEN, 1-2 TIMES PER DAY)
     Route: 048
  3. FLOMAX [Concomitant]
     Active Substance: TAMSULOSIN HYDROCHLORIDE
     Dosage: 0.4 MG, 1X/DAY, (21, TAKE 1 CAPSULE ORALLY NIGHTLY)
     Route: 048
  4. NIACIN. [Concomitant]
     Active Substance: NIACIN
     Dosage: 250 MG, DAILY
     Route: 048
  5. XANAX [Concomitant]
     Active Substance: ALPRAZOLAM
     Indication: PANIC DISORDER
     Dosage: 0.5 MG, AS NEEDED, (2 TIMES A DAY )
     Route: 048
  6. LYRICA [Suspect]
     Active Substance: PREGABALIN
     Indication: FIBROMYALGIA
     Dosage: 75 MG, 2X/DAY
     Route: 048
  7. BUSPIRONE HCL [Concomitant]
     Active Substance: BUSPIRONE HYDROCHLORIDE
     Dosage: 15 MG, 2X/DAY
     Route: 048
  8. SIMVASTATIN. [Concomitant]
     Active Substance: SIMVASTATIN
     Dosage: 20 MG, DAILY
     Route: 048
  9. TRAZODONE HYDROCHLORIDE. [Concomitant]
     Active Substance: TRAZODONE HYDROCHLORIDE
     Dosage: 300 MG, 1X/DAY, (2 TABLETS, NIGHTLY )
     Route: 048
  10. FLUTICASONE PROPIONATE. [Concomitant]
     Active Substance: FLUTICASONE PROPIONATE
     Dosage: 50 UG, DAILY, (1 SPRAY)
     Route: 045
  11. FOLIC ACID. [Concomitant]
     Active Substance: FOLIC ACID
     Dosage: 1 MG, DAILY
     Route: 048
  12. DICLOFENAC SODIUM. [Concomitant]
     Active Substance: DICLOFENAC SODIUM
     Dosage: 75 MG, 2X/DAY
     Route: 048

REACTIONS (10)
  - Sinus pain [Unknown]
  - Diarrhoea [Unknown]
  - Flatulence [Unknown]
  - Headache [Unknown]
  - Tinnitus [Unknown]
  - Pain [Not Recovered/Not Resolved]
  - Dizziness [Unknown]
  - Abdominal pain [Unknown]
  - Neck pain [Unknown]
  - Nasal congestion [Unknown]
